FAERS Safety Report 15523181 (Version 3)
Quarter: 2018Q4

REPORT INFORMATION
  Report Type: Report from Study
  Country: CN (occurrence: CN)
  Receive Date: 20181018
  Receipt Date: 20181114
  Transmission Date: 20190205
  Serious: Yes (Other)
  Sender: FDA-Public Use
  Company Number: CN-ROCHE-1899835

PATIENT
  Sex: Female
  Weight: 48 kg

DRUGS (1)
  1. AVASTIN [Suspect]
     Active Substance: BEVACIZUMAB
     Indication: COLORECTAL CANCER
     Route: 041
     Dates: start: 20160830

REACTIONS (4)
  - Icterus index increased [Unknown]
  - Blood test abnormal [Unknown]
  - Jaundice [Unknown]
  - Bone marrow failure [Unknown]
